FAERS Safety Report 16807558 (Version 2)
Quarter: 2019Q4

REPORT INFORMATION
  Report Type: Report from Study
  Country: US (occurrence: US)
  Receive Date: 20190914
  Receipt Date: 20191114
  Transmission Date: 20200122
  Serious: Yes (Other)
  Sender: FDA-Public Use
  Company Number: PHEH2019US036947

PATIENT
  Age: 58 Year
  Sex: Female

DRUGS (2)
  1. MAYZENT [Suspect]
     Active Substance: SIPONIMOD
     Indication: MULTIPLE SCLEROSIS
     Dosage: 1 MG, QD
     Route: 048
  2. MAYZENT [Suspect]
     Active Substance: SIPONIMOD
     Dosage: 0.25 MG, QID
     Route: 048
     Dates: start: 20190815

REACTIONS (7)
  - Trigeminal neuralgia [Unknown]
  - Asthenia [Unknown]
  - Drug ineffective [Unknown]
  - Fine motor skill dysfunction [Unknown]
  - Limb injury [Unknown]
  - Multiple sclerosis [Unknown]
  - Movement disorder [Unknown]

NARRATIVE: CASE EVENT DATE: 20190815
